FAERS Safety Report 7431757-3 (Version None)
Quarter: 2011Q1

REPORT INFORMATION
  Report Type: 
  Country: None (occurrence: None)
  Receive Date: 20110302
  Receipt Date: 20101117
  Transmission Date: 20110831
  Serious: No
  Sender: FDA-Public Use
  Company Number: 021087

PATIENT
  Sex: Female

DRUGS (3)
  1. CIMZIA [Suspect]
     Indication: RHEUMATOID ARTHRITIS
     Dosage: SEE IMAGE SUBCUTANEOUS
     Route: 058
     Dates: start: 20100901
  2. CIMZIA [Suspect]
     Indication: RHEUMATOID ARTHRITIS
     Dosage: SEE IMAGE SUBCUTANEOUS
     Route: 058
     Dates: start: 20100101
  3. CIMZIA [Suspect]
     Indication: RHEUMATOID ARTHRITIS
     Dosage: SEE IMAGE SUBCUTANEOUS
     Route: 058
     Dates: start: 20101025

REACTIONS (6)
  - INJECTION SITE SWELLING [None]
  - INJECTION SITE PAIN [None]
  - INJECTION SITE HAEMATOMA [None]
  - INJECTION SITE PALLOR [None]
  - INCORRECT DOSE ADMINISTERED [None]
  - DEVICE ISSUE [None]
